FAERS Safety Report 8164013-9 (Version None)
Quarter: 2012Q1

REPORT INFORMATION
  Report Type: 
  Country: None (occurrence: None)
  Receive Date: 20120221
  Receipt Date: 20120208
  Transmission Date: 20120608
  Serious: Yes (Hospitalization)
  Sender: FDA-Public Use
  Company Number: USA/UKI/12/0023022

PATIENT
  Age: 61 Year
  Sex: Female

DRUGS (6)
  1. ROSUVASTATIN [Concomitant]
  2. OMEPRAZOLE [Concomitant]
  3. BENDROFLUMETHIAZIDE (BENDROFLUMETHIAZIDE) [Suspect]
     Indication: PRODUCT USED FOR UNKNOWN INDICATION
     Dosage: 2 2.5 MG, 1 IN 1 D,
  4. RAMIPRIL [Concomitant]
  5. FLUOXETINE [Suspect]
     Indication: PRODUCT USED FOR UNKNOWN INDICATION
     Dosage: 20 MG, 1 IN 1 D,
  6. MEBEVERINE (MEBEVERINE) [Concomitant]

REACTIONS (8)
  - VOMITING [None]
  - HYPONATRAEMIA [None]
  - DIARRHOEA [None]
  - CONFUSIONAL STATE [None]
  - HYPOKALAEMIA [None]
  - PYREXIA [None]
  - INAPPROPRIATE ANTIDIURETIC HORMONE SECRETION [None]
  - HYPOVOLAEMIA [None]
